FAERS Safety Report 7156831 (Version 10)
Quarter: 2015Q4

REPORT INFORMATION
  Report Type: Report from Study
  Country: US (occurrence: US)
  Receive Date: 20091023
  Receipt Date: 20151126
  Transmission Date: 20160305
  Serious: Yes (Hospitalization)
  Sender: FDA-Public Use
  Company Number: US-BIOGENIDEC-2009BI032139

PATIENT
  Age: 59 Year
  Sex: Female
  Weight: 89 kg

DRUGS (19)
  1. PROAIR HFA [Concomitant]
     Active Substance: ALBUTEROL SULFATE
     Dates: start: 2000
  2. BONIVA [Concomitant]
     Active Substance: IBANDRONATE SODIUM
  3. OMEPRAZOLE. [Concomitant]
     Active Substance: OMEPRAZOLE
     Dates: start: 2009
  4. BONIVA [Concomitant]
     Active Substance: IBANDRONATE SODIUM
     Dates: start: 2009
  5. ASPIRIN. [Concomitant]
     Active Substance: ASPIRIN
     Dates: start: 2011
  6. SINGULAIR [Concomitant]
     Active Substance: MONTELUKAST SODIUM
  7. AMPYRA [Concomitant]
     Active Substance: DALFAMPRIDINE
     Indication: GAIT DISTURBANCE
     Route: 048
     Dates: start: 2012, end: 201506
  8. VESICARE [Concomitant]
     Active Substance: SOLIFENACIN SUCCINATE
  9. DIOVAN [Concomitant]
     Active Substance: VALSARTAN
  10. LEXAPRO [Concomitant]
     Active Substance: ESCITALOPRAM OXALATE
     Dates: start: 2000
  11. AVONEX [Suspect]
     Active Substance: INTERFERON BETA-1A
     Indication: MULTIPLE SCLEROSIS
     Route: 030
  12. COPAXONE [Concomitant]
     Active Substance: GLATIRAMER ACETATE
     Indication: GAIT DISTURBANCE
     Dates: start: 2011
  13. LIPITOR [Concomitant]
     Active Substance: ATORVASTATIN CALCIUM
  14. WELLBUTRIN [Concomitant]
     Active Substance: BUPROPION HYDROCHLORIDE
     Dates: start: 2000
  15. PHENERGAN [Concomitant]
     Active Substance: PROMETHAZINE HYDROCHLORIDE
  16. HYDROXYZINE HCL [Concomitant]
     Active Substance: HYDROXYZINE HYDROCHLORIDE
  17. AVONEX [Suspect]
     Active Substance: INTERFERON BETA-1A
     Indication: MULTIPLE SCLEROSIS
     Route: 030
     Dates: start: 20060826, end: 2011
  18. AMBIEN [Concomitant]
     Active Substance: ZOLPIDEM TARTRATE
     Dates: start: 2000
  19. ASPIRIN. [Concomitant]
     Active Substance: ASPIRIN

REACTIONS (12)
  - Fall [Recovered/Resolved]
  - Carpal tunnel syndrome [Unknown]
  - Wound [Unknown]
  - Ankle fracture [Recovered/Resolved]
  - Arthritis [Unknown]
  - Hip fracture [Recovered/Resolved]
  - Pain in extremity [Unknown]
  - Wound infection staphylococcal [Not Recovered/Not Resolved]
  - Malaise [Unknown]
  - Fracture malunion [Not Recovered/Not Resolved]
  - Erythema [Unknown]
  - Medical device site injury [Not Recovered/Not Resolved]

NARRATIVE: CASE EVENT DATE: 2009
